FAERS Safety Report 23912130 (Version 1)
Quarter: 2024Q2

REPORT INFORMATION
  Report Type: Spontaneous
  Country: US (occurrence: US)
  Receive Date: 20240528
  Receipt Date: 20240528
  Transmission Date: 20240716
  Serious: No
  Sender: FDA-Public Use
  Company Number: US-MYLANLABS-2024M1042306

PATIENT
  Age: 77 Year
  Sex: Male

DRUGS (1)
  1. WIXELA INHUB [Suspect]
     Active Substance: FLUTICASONE PROPIONATE\SALMETEROL XINAFOATE
     Indication: Chronic obstructive pulmonary disease
     Dosage: 100/50 MICROGRAM, QD (ONCE A DAY IN THE EVENING)
     Route: 065

REACTIONS (5)
  - Off label use [Unknown]
  - Device delivery system issue [Unknown]
  - Device issue [Unknown]
  - Device mechanical issue [Unknown]
  - Product quality issue [Unknown]

NARRATIVE: CASE EVENT DATE: 20240429
